FAERS Safety Report 13604771 (Version 1)
Quarter: 2017Q2

REPORT INFORMATION
  Report Type: Spontaneous
  Country: US (occurrence: US)
  Receive Date: 20170601
  Receipt Date: 20170601
  Transmission Date: 20170830
  Serious: No
  Sender: FDA-Public Use
  Company Number: None

PATIENT

DRUGS (1)
  1. SYNTHROID [Suspect]
     Active Substance: LEVOTHYROXINE SODIUM
     Dosage: 400MCG 2 MORRNING MOUTH
     Route: 048

REACTIONS (9)
  - Myalgia [None]
  - Fatigue [None]
  - Asthenia [None]
  - Swelling face [None]
  - Crying [None]
  - Weight increased [None]
  - Emotional distress [None]
  - Alopecia [None]
  - Depression [None]
